FAERS Safety Report 18485383 (Version 1)
Quarter: 2020Q4

REPORT INFORMATION
  Report Type: Spontaneous
  Country: US (occurrence: US)
  Receive Date: 20201109
  Receipt Date: 20201109
  Transmission Date: 20210114
  Serious: Yes (Disabling)
  Sender: FDA-Public Use
  Company Number: None

PATIENT
  Age: 72 Year
  Sex: Female
  Weight: 88.65 kg

DRUGS (6)
  1. RISPERIDONE 2MG TABLETS ZYDUS PHARM [Suspect]
     Active Substance: RISPERIDONE
     Indication: SCHIZOAFFECTIVE DISORDER
     Dosage: ?          QUANTITY:1 TABLET(S);?
     Route: 048
  2. SERTRALINE HCL [Concomitant]
     Active Substance: SERTRALINE HYDROCHLORIDE
  3. DIVALPROEX SODIUM DR [Concomitant]
     Active Substance: DIVALPROEX SODIUM
  4. METFORMIN HCL [Concomitant]
     Active Substance: METFORMIN HYDROCHLORIDE
  5. IBUPROPHEN [Concomitant]
     Active Substance: IBUPROFEN
  6. LISINOPRIL. [Concomitant]
     Active Substance: LISINOPRIL

REACTIONS (2)
  - Asthenia [None]
  - Product substitution issue [None]

NARRATIVE: CASE EVENT DATE: 20201102
